FAERS Safety Report 6483221-6 (Version None)
Quarter: 2009Q4

REPORT INFORMATION
  Report Type: 
  Country: None (occurrence: None)
  Receive Date: 20091209
  Receipt Date: 20091127
  Transmission Date: 20100525
  Serious: Yes (Other)
  Sender: FDA-Public Use
  Company Number: GB-BAYER-200940961GPV

PATIENT
  Age: 76 Year
  Sex: Female
  Weight: 49 kg

DRUGS (53)
  1. SORAFENIB [Suspect]
     Indication: COLORECTAL CANCER METASTATIC
     Dosage: UNIT DOSE: 400 MG
     Route: 048
     Dates: start: 20091021, end: 20091126
  2. SORAFENIB [Suspect]
     Dosage: UNIT DOSE: 400 MG
     Route: 048
     Dates: start: 20090924, end: 20091020
  3. OXALIPLATIN [Suspect]
     Indication: COLORECTAL CANCER METASTATIC
     Dosage: UNIT DOSE: 85 MG
     Route: 042
     Dates: start: 20090924, end: 20090924
  4. OXALIPLATIN [Suspect]
     Dosage: UNIT DOSE: 85 MG
     Route: 042
     Dates: start: 20091008, end: 20091008
  5. OXALIPLATIN [Suspect]
     Dosage: UNIT DOSE: 85 MG
     Route: 042
     Dates: start: 20091022, end: 20091022
  6. OXALIPLATIN [Suspect]
     Dosage: UNIT DOSE: 85 MG
     Route: 042
     Dates: start: 20091104, end: 20091104
  7. LEUCOVORIN CALCIUM [Suspect]
     Indication: COLORECTAL CANCER METASTATIC
     Dosage: UNIT DOSE: 400 MG
     Route: 042
     Dates: start: 20091104, end: 20091104
  8. LEUCOVORIN CALCIUM [Suspect]
     Dosage: UNIT DOSE: 400 MG
     Route: 042
     Dates: start: 20091008, end: 20091008
  9. LEUCOVORIN CALCIUM [Suspect]
     Dosage: UNIT DOSE: 400 MG
     Route: 042
     Dates: start: 20091022, end: 20091022
  10. LEUCOVORIN CALCIUM [Suspect]
     Dosage: UNIT DOSE: 400 MG
     Route: 042
     Dates: start: 20090924, end: 20090924
  11. FLUOROURACIL [Suspect]
     Indication: COLORECTAL CANCER METASTATIC
     Dosage: UNIT DOSE: 2400 MG
     Route: 042
     Dates: start: 20091008, end: 20091010
  12. FLUOROURACIL [Suspect]
     Dosage: UNIT DOSE: 2400 MG
     Route: 042
     Dates: start: 20091104, end: 20091106
  13. FLUOROURACIL [Suspect]
     Dosage: UNIT DOSE: 400 MG
     Route: 040
     Dates: start: 20090924, end: 20090924
  14. FLUOROURACIL [Suspect]
     Dosage: UNIT DOSE: 400 MG
     Route: 040
     Dates: start: 20091008, end: 20091008
  15. FLUOROURACIL [Suspect]
     Dosage: UNIT DOSE: 400 MG
     Route: 040
     Dates: start: 20091104, end: 20091104
  16. FLUOROURACIL [Suspect]
     Dosage: UNIT DOSE: 400 MG
     Route: 040
     Dates: start: 20091022, end: 20091022
  17. FLUOROURACIL [Suspect]
     Dosage: UNIT DOSE: 2400 MG
     Route: 042
     Dates: start: 20091022, end: 20091024
  18. FLUOROURACIL [Suspect]
     Dosage: UNIT DOSE: 2400 MG
     Route: 042
     Dates: start: 20090924, end: 20090926
  19. ONDANSETRON [Concomitant]
     Indication: PROPHYLAXIS OF NAUSEA AND VOMITING
     Route: 048
     Dates: start: 20091104, end: 20091107
  20. ONDANSETRON [Concomitant]
     Route: 048
     Dates: start: 20091104, end: 20091104
  21. ONDANSETRON [Concomitant]
     Route: 048
     Dates: start: 20091022, end: 20091025
  22. ONDANSETRON [Concomitant]
     Route: 048
     Dates: start: 20091022, end: 20091022
  23. ONDANSETRON [Concomitant]
     Route: 048
     Dates: start: 20090924, end: 20090924
  24. ONDANSETRON [Concomitant]
     Route: 048
     Dates: start: 20090924, end: 20090927
  25. ONDANSETRON [Concomitant]
     Route: 048
     Dates: start: 20091008, end: 20091011
  26. DEXAMETHASONE TAB [Concomitant]
     Indication: PROPHYLAXIS OF NAUSEA AND VOMITING
     Route: 048
     Dates: start: 20090924, end: 20090924
  27. DEXAMETHASONE TAB [Concomitant]
     Route: 048
     Dates: start: 20091008, end: 20091008
  28. DEXAMETHASONE TAB [Concomitant]
     Route: 048
     Dates: start: 20091022, end: 20091022
  29. DEXAMETHASONE TAB [Concomitant]
     Route: 048
     Dates: start: 20091104, end: 20091104
  30. DEXAMETHASONE TAB [Concomitant]
     Route: 048
     Dates: start: 20091104, end: 20091107
  31. DEXAMETHASONE TAB [Concomitant]
     Route: 048
     Dates: start: 20091022, end: 20091025
  32. DEXAMETHASONE TAB [Concomitant]
     Route: 048
     Dates: start: 20091008, end: 20091011
  33. DEXAMETHASONE TAB [Concomitant]
     Route: 048
     Dates: start: 20090924, end: 20090927
  34. DOMPERIDONE [Concomitant]
     Indication: PROPHYLAXIS OF NAUSEA AND VOMITING
     Dates: start: 20090924, end: 20091001
  35. DOMPERIDONE [Concomitant]
     Dates: start: 20091008, end: 20091015
  36. DOMPERIDONE [Concomitant]
     Dates: start: 20091104, end: 20091111
  37. DOMPERIDONE [Concomitant]
     Dates: start: 20091022, end: 20091029
  38. LOPERAMIDE [Concomitant]
     Indication: PROPHYLAXIS AGAINST DIARRHOEA
     Dates: start: 20091104, end: 20091111
  39. LOPERAMIDE [Concomitant]
     Dates: start: 20091022, end: 20091029
  40. LOPERAMIDE [Concomitant]
     Dates: start: 20090924, end: 20091001
  41. LOPERAMIDE [Concomitant]
     Dates: start: 20091008, end: 20091015
  42. CHLORHEXIDINE 0.2% MOUTHWASH [Concomitant]
     Indication: STOMATITIS
     Dates: start: 20091008, end: 20091015
  43. CHLORHEXIDINE 0.2% MOUTHWASH [Concomitant]
     Dates: start: 20091022, end: 20091029
  44. CHLORHEXIDINE 0.2% MOUTHWASH [Concomitant]
     Dates: start: 20090924, end: 20091001
  45. CHLORHEXIDINE 0.2% MOUTHWASH [Concomitant]
     Dates: start: 20091104, end: 20091111
  46. OMEPRAZOLE [Concomitant]
     Indication: PROPHYLAXIS AGAINST GASTROINTESTINAL ULCER
     Dates: start: 20090817
  47. PARACETAMOL [Concomitant]
     Indication: PAIN
     Dates: start: 20090817
  48. FERROUS SULFATE TAB [Concomitant]
     Indication: ANAEMIA
     Dates: start: 20090830
  49. ZOPICLONE [Concomitant]
     Indication: SLEEP DISORDER
     Dates: start: 20090817
  50. CO-DANTHRAMER [Concomitant]
     Indication: CONSTIPATION
     Dosage: 1 TABLET
     Dates: start: 20090830
  51. IBUPROFEN [Concomitant]
     Indication: PAIN
     Dates: start: 20090924
  52. ONDANSETRON [Concomitant]
     Dates: start: 20091008, end: 20091008
  53. CONTRAST (NOS) [Concomitant]
     Indication: NUCLEAR MAGNETIC RESONANCE IMAGING BRAIN
     Dates: start: 20091125

REACTIONS (10)
  - CONSTIPATION [None]
  - DEMYELINATION [None]
  - DIARRHOEA [None]
  - DIZZINESS [None]
  - ERYTHEMA [None]
  - FATIGUE [None]
  - FEELING ABNORMAL [None]
  - GAIT DISTURBANCE [None]
  - HYPERKERATOSIS PALMARIS AND PLANTARIS [None]
  - MALAISE [None]
